FAERS Safety Report 5313453-1 (Version None)
Quarter: 2007Q2

REPORT INFORMATION
  Report Type: 
  Country: None (occurrence: None)
  Receive Date: 20070424
  Receipt Date: 20070409
  Transmission Date: 20071010
  Serious: Yes (Hospitalization)
  Sender: FDA-Public Use
  Company Number: 280001M07JPN

PATIENT
  Age: 41 Year
  Sex: Female
  Weight: 49 kg

DRUGS (8)
  1. FERTINORM P (MENOTROPHIN) [Suspect]
     Indication: OVULATION INDUCTION
     Dosage: 150
     Dates: start: 20070321, end: 20070328
  2. SEROPHENE [Suspect]
     Indication: OVULATION INDUCTION
     Dosage: 100 MG
     Dates: start: 20070321, end: 20070325
  3. CETROTIDE [Suspect]
     Indication: OVULATION INDUCTION
     Dosage: 0.25 MG, INTRAMUSCULAR
     Route: 030
  4. PROPOFOL [Suspect]
     Indication: ANAESTHESIA
     Dosage: 150 MG
     Dates: start: 20070331
  5. PENTAZOCINE LACTATE [Suspect]
     Indication: ANAESTHESIA
     Dosage: 7.5 MG
     Dates: start: 20070331
  6. CHRONIC GONADOTROPHIN [Suspect]
     Indication: OVULATION INDUCTION
     Dosage: 10000 IU
  7. PREDNISONE [Suspect]
     Indication: OVULATION INDUCTION
  8. BUFFERIN [Suspect]
     Indication: OVULATION INDUCTION

REACTIONS (4)
  - ANAESTHETIC COMPLICATION [None]
  - HYPERSENSITIVITY [None]
  - PROCEDURAL COMPLICATION [None]
  - PULMONARY HAEMORRHAGE [None]
